FAERS Safety Report 10265577 (Version 1)
Quarter: 2014Q2

REPORT INFORMATION
  Report Type: Spontaneous
  Country: US (occurrence: None)
  Receive Date: 20140625
  Receipt Date: 20140625
  Transmission Date: 20141212
  Serious: Yes (Hospitalization)
  Sender: FDA-Public Use
  Company Number: None

PATIENT
  Age: 41 Year
  Sex: Female
  Weight: 68.95 kg

DRUGS (11)
  1. LAMICTAL [Suspect]
     Indication: CONVULSION
  2. BENADRYL [Concomitant]
  3. CITALOPRAM [Concomitant]
  4. DEPAKOTE [Concomitant]
  5. ELIDEL CREAM [Concomitant]
  6. ENABLEX [Concomitant]
  7. HYDROCORTISONE OINT [Concomitant]
  8. LEVOTHYROXINE [Concomitant]
  9. PREDNISONE [Concomitant]
  10. TYLENOL [Concomitant]
  11. VITAMIN D [Concomitant]

REACTIONS (3)
  - Mouth haemorrhage [None]
  - Drug eruption [None]
  - Erythema [None]
